FAERS Safety Report 11825283 (Version 2)
Quarter: 2025Q3

REPORT INFORMATION
  Report Type: Spontaneous
  Country: IN (occurrence: IN)
  Receive Date: 20151211
  Receipt Date: 20250819
  Transmission Date: 20251021
  Serious: Yes (Death, Life-Threatening, Hospitalization, Other)
  Sender: ACCORD
  Company Number: IN-ACCORD-036196

PATIENT
  Age: 40 Year
  Sex: Male

DRUGS (2)
  1. MYCOPHENOLATE MOFETIL [Suspect]
     Active Substance: MYCOPHENOLATE MOFETIL
     Indication: Immunosuppressant drug therapy
     Dates: start: 2011, end: 2011
  2. CYCLOSPORINE [Suspect]
     Active Substance: CYCLOSPORINE
     Indication: Immunosuppressant drug therapy
     Dates: start: 2011, end: 2011

REACTIONS (4)
  - Scedosporium infection [Fatal]
  - Hemiparesis [Unknown]
  - Fungal abscess central nervous system [Unknown]
  - Dengue fever [Unknown]

NARRATIVE: CASE EVENT DATE: 20110101
